FAERS Safety Report 9381340 (Version 2)
Quarter: 2013Q3

REPORT INFORMATION
  Report Type: Spontaneous
  Country: US (occurrence: US)
  Receive Date: 20130703
  Receipt Date: 20130830
  Transmission Date: 20140515
  Serious: No
  Sender: FDA-Public Use
  Company Number: US-ASTRAZENECA-2013SE46444

PATIENT
  Age: 74 Year
  Sex: Female
  Weight: 54 kg

DRUGS (7)
  1. TOPROL XL [Suspect]
     Indication: HEART RATE INCREASED
     Dosage: DAILY
     Route: 048
     Dates: start: 2012, end: 2013
  2. UNSPECIFIED BETABOCKER/ UNSPECIFIED MEDICATIONS [Suspect]
     Route: 065
  3. CHOLESTEROL PILL [Suspect]
     Indication: BLOOD CHOLESTEROL INCREASED
     Dosage: DAILY
     Route: 065
  4. BONIVA [Concomitant]
     Indication: BONE DISORDER
     Dosage: MONTH
  5. FISH OIL [Concomitant]
     Dosage: DAILY
  6. BABY ASPRIN [Concomitant]
     Dosage: DAILY
  7. BLOOD THINNER [Concomitant]
     Indication: ANTICOAGULANT THERAPY
     Dosage: DAILY

REACTIONS (6)
  - Hyperphagia [Not Recovered/Not Resolved]
  - Tremor [Not Recovered/Not Resolved]
  - Malaise [Not Recovered/Not Resolved]
  - Mental disorder [Not Recovered/Not Resolved]
  - Feeling abnormal [Unknown]
  - Alopecia [Not Recovered/Not Resolved]
